FAERS Safety Report 12504326 (Version 2)
Quarter: 2016Q3

REPORT INFORMATION
  Report Type: Spontaneous
  Country: IT (occurrence: IT)
  Receive Date: 20160628
  Receipt Date: 20160707
  Transmission Date: 20161109
  Serious: Yes (Hospitalization)
  Sender: FDA-Public Use
  Company Number: IT-VALIDUS PHARMACEUTICALS LLC-IT-2016VAL002170

PATIENT
  Age: 75 Year
  Sex: Male

DRUGS (11)
  1. DILATREND [Concomitant]
     Active Substance: CARVEDILOL
     Indication: PRODUCT USED FOR UNKNOWN INDICATION
     Dosage: UNK
     Dates: start: 20090609
  2. LUVION                             /00252501/ [Suspect]
     Active Substance: CANRENONE
     Indication: CARDIAC FAILURE
     Dosage: 50 MG, DAILY
     Dates: start: 20140530
  3. CARDIOASPIRIN [Concomitant]
     Active Substance: ASPIRIN
     Indication: PRODUCT USED FOR UNKNOWN INDICATION
     Dosage: UNK
     Dates: start: 20090921
  4. METFORMIN [Concomitant]
     Active Substance: METFORMIN HYDROCHLORIDE
     Indication: PRODUCT USED FOR UNKNOWN INDICATION
     Dosage: UNK
  5. LASIX [Suspect]
     Active Substance: FUROSEMIDE
     Indication: HYPERTENSION
     Dosage: 25 MG, BID
     Route: 048
     Dates: start: 20060615
  6. ENAPREN [Suspect]
     Active Substance: ENALAPRIL MALEATE
     Indication: CARDIAC FAILURE
  7. LIMPIDEX [Concomitant]
     Active Substance: LANSOPRAZOLE
     Indication: PRODUCT USED FOR UNKNOWN INDICATION
     Dosage: UNK
     Dates: start: 20070507
  8. ZYLORIC [Concomitant]
     Active Substance: ALLOPURINOL
     Indication: PRODUCT USED FOR UNKNOWN INDICATION
     Dosage: UNK
     Dates: start: 20061108
  9. ENAPREN [Suspect]
     Active Substance: ENALAPRIL MALEATE
     Indication: HYPERTENSION
     Dosage: 10 MG, BID
     Dates: start: 20120306
  10. REPAGLINIDE. [Concomitant]
     Active Substance: REPAGLINIDE
     Indication: PRODUCT USED FOR UNKNOWN INDICATION
     Dosage: UNK
  11. LASIX [Suspect]
     Active Substance: FUROSEMIDE
     Indication: CARDIAC FAILURE
     Dosage: 25 MG, DAILY
     Route: 048

REACTIONS (1)
  - Syncope [Recovered/Resolved]

NARRATIVE: CASE EVENT DATE: 20150518
